FAERS Safety Report 9079208 (Version 1)
Quarter: 2013Q1

REPORT INFORMATION
  Report Type: Report from Study
  Country: US (occurrence: US)
  Receive Date: 20130130
  Receipt Date: 20130130
  Transmission Date: 20140127
  Serious: No
  Sender: FDA-Public Use
  Company Number: US-ABBOTT-12P-163-0949349-00

PATIENT
  Age: 62 Year
  Sex: Female

DRUGS (12)
  1. HUMIRA 40 MG/0.8 ML PEN [Suspect]
     Indication: RHEUMATOID ARTHRITIS
     Dates: start: 20120404
  2. METHOTREXATE [Concomitant]
     Indication: RHEUMATOID ARTHRITIS
     Dosage: WEEKLY ON SATURDAYS
  3. NAPROXEN [Concomitant]
     Indication: INFLAMMATION
  4. HYDROCODONE [Concomitant]
     Indication: RHEUMATOID ARTHRITIS
     Dosage: 5/500 MG AS NEEDED
  5. FLEXERIL [Concomitant]
     Indication: MUSCLE SPASMS
     Dosage: 1-2 TABLETS AS NEEDED
  6. FLEXERIL [Concomitant]
     Dosage: AS NEEDED
  7. GLIPIZIDE/METFORMIN [Concomitant]
     Indication: DIABETES MELLITUS
     Dosage: 1 TAB IN THE MORNING AND 1 TAB AT NIGHT
  8. LISINOPRIL [Concomitant]
     Indication: HYPERTENSION
  9. JANUVIA [Concomitant]
     Indication: DIABETES MELLITUS
  10. ATENOLOL [Concomitant]
     Indication: HEART RATE INCREASED
  11. ALLEGRA [Concomitant]
     Indication: HYPERSENSITIVITY
  12. FOLIC ACID [Concomitant]
     Indication: PRODUCT USED FOR UNKNOWN INDICATION
     Dates: start: 20120608

REACTIONS (11)
  - Pyrexia [Recovering/Resolving]
  - Feeling jittery [Recovering/Resolving]
  - Hyperhidrosis [Recovering/Resolving]
  - Adverse drug reaction [Recovering/Resolving]
  - Abdominal discomfort [Not Recovered/Not Resolved]
  - Local swelling [Recovering/Resolving]
  - Headache [Recovered/Resolved]
  - Abdominal pain upper [Unknown]
  - Abdominal distension [Unknown]
  - Decreased appetite [Unknown]
  - Faeces discoloured [Not Recovered/Not Resolved]
